FAERS Safety Report 11277568 (Version 1)
Quarter: 2015Q3

REPORT INFORMATION
  Report Type: Report from Study
  Country: NL (occurrence: NL)
  Receive Date: 20150716
  Receipt Date: 20150716
  Transmission Date: 20151125
  Serious: Yes (Death)
  Sender: FDA-Public Use
  Company Number: US-ASTRAZENECA-2014SE90288

PATIENT
  Age: 175 Day
  Sex: Female

DRUGS (1)
  1. SYNAGIS [Suspect]
     Active Substance: PALIVIZUMAB
     Indication: PREMATURE BABY
     Dosage: 15 MG/KG (70 MG) MONTHLY
     Route: 030
     Dates: start: 20141112, end: 20141112

REACTIONS (1)
  - Death [Fatal]

NARRATIVE: CASE EVENT DATE: 20141208
